FAERS Safety Report 9542620 (Version 1)
Quarter: 2013Q3

REPORT INFORMATION
  Report Type: Spontaneous
  Country: ES (occurrence: ES)
  Receive Date: 20130923
  Receipt Date: 20130923
  Transmission Date: 20140515
  Serious: Yes (Hospitalization)
  Sender: FDA-Public Use
  Company Number: ES-PFIZER INC-2013271006

PATIENT
  Age: 78 Year
  Sex: Female

DRUGS (8)
  1. CELECOXIB [Suspect]
     Dosage: UNK
     Route: 048
     Dates: start: 2004
  2. ZYTRAM [Suspect]
     Indication: BACK PAIN
     Dosage: 75 MG, 2X/DAY
     Route: 048
     Dates: start: 20130509, end: 20130514
  3. SIMVASTATIN [Concomitant]
  4. BRINZOLAMIDE [Concomitant]
  5. CHONDROITIN [Concomitant]
  6. IDEOS [Concomitant]
  7. LANSOPRAZOL [Concomitant]
  8. DENOSUMAB [Concomitant]

REACTIONS (3)
  - Constipation [Recovered/Resolved]
  - Colitis ischaemic [Recovered/Resolved]
  - Rectal haemorrhage [Recovered/Resolved]
